FAERS Safety Report 22036275 (Version 1)
Quarter: 2023Q1

REPORT INFORMATION
  Report Type: Spontaneous
  Country: GR (occurrence: GR)
  Receive Date: 20230225
  Receipt Date: 20230225
  Transmission Date: 20230418
  Serious: Yes (Death, Other)
  Sender: FDA-Public Use
  Company Number: GR-BoehringerIngelheim-2023-BI-220886

PATIENT
  Age: 78 Year
  Sex: Female

DRUGS (1)
  1. PRAXBIND [Suspect]
     Active Substance: IDARUCIZUMAB
     Indication: Haemorrhage
     Dates: start: 20230220

REACTIONS (1)
  - Death [Fatal]

NARRATIVE: CASE EVENT DATE: 20230223
